FAERS Safety Report 4445447-2 (Version None)
Quarter: 2004Q3

REPORT INFORMATION
  Report Type: 
  Country: None (occurrence: None)
  Receive Date: 20040802
  Receipt Date: 20040507
  Transmission Date: 20050211
  Serious: No
  Sender: FDA-Public Use
  Company Number: 2004-116202-NL

PATIENT
  Age: 49 Year
  Sex: Female
  Weight: 66.8 kg

DRUGS (9)
  1. NUVARING [Suspect]
     Indication: CONTRACEPTION
     Dosage: DF DAILY VAGINAL
     Route: 067
  2. NUVARING [Suspect]
     Indication: PREMENSTRUAL SYNDROME
     Dosage: DF DAILY VAGINAL
     Route: 067
  3. TOPAMAX [Concomitant]
  4. NEURONTIN [Concomitant]
  5. CELEXA [Concomitant]
  6. WELLBUTRIN [Concomitant]
  7. PROZAC [Concomitant]
  8. NAPROSYN [Concomitant]
  9. MULTI-VITAMINS [Concomitant]

REACTIONS (1)
  - PREMENSTRUAL SYNDROME [None]
